FAERS Safety Report 7137220-1 (Version None)
Quarter: 2010Q4

REPORT INFORMATION
  Report Type: 
  Country: None (occurrence: None)
  Receive Date: 20101206
  Receipt Date: 20080611
  Transmission Date: 20110411
  Serious: Yes (Death)
  Sender: FDA-Public Use
  Company Number: US-ACTELION-A-US2006-15936

PATIENT

DRUGS (5)
  1. ILOPROST INHALATION SOLUTION 5UG US [Suspect]
     Indication: PULMONARY ARTERIAL HYPERTENSION
     Dosage: 5 UG, 5 X DAY
     Route: 055
     Dates: start: 20051201, end: 20070918
  2. TRACLEER [Concomitant]
     Indication: PULMONARY ARTERIAL HYPERTENSION
     Route: 048
     Dates: end: 20070918
  3. PREDNISONE [Concomitant]
  4. PROTONIX [Concomitant]
  5. SILDENAFIL [Concomitant]

REACTIONS (3)
  - COUGH [None]
  - DEATH [None]
  - DYSURIA [None]
